FAERS Safety Report 9422133 (Version 4)
Quarter: 2013Q3

REPORT INFORMATION
  Report Type: Spontaneous
  Country: AR (occurrence: AR)
  Receive Date: 20130726
  Receipt Date: 20130826
  Transmission Date: 20140515
  Serious: Yes (Hospitalization, Other)
  Sender: FDA-Public Use
  Company Number: AR-PFIZER INC-2013216851

PATIENT
  Age: 62 Year
  Sex: Male

DRUGS (1)
  1. SUTENT [Suspect]
     Indication: METASTATIC RENAL CELL CARCINOMA
     Dosage: 50 MG FOR 21 DAYS
     Dates: start: 20130614

REACTIONS (9)
  - Cellulitis [Not Recovered/Not Resolved]
  - Pneumonia [Recovered/Resolved]
  - Haemorrhoidal haemorrhage [Recovered/Resolved]
  - Pyrexia [Not Recovered/Not Resolved]
  - Limb injury [Recovered/Resolved]
  - Nail disorder [Recovered/Resolved]
  - Diarrhoea [Recovered/Resolved]
  - Skin disorder [Unknown]
  - Activities of daily living impaired [Unknown]
